FAERS Safety Report 10010882 (Version 3)
Quarter: 2014Q2

REPORT INFORMATION
  Report Type: Report from Study
  Country: DE (occurrence: DE)
  Receive Date: 20140314
  Receipt Date: 20140522
  Transmission Date: 20141212
  Serious: Yes (Life-Threatening, Hospitalization)
  Sender: FDA-Public Use
  Company Number: DE-AMGEN-DEUCT2014018167

PATIENT
  Age: 70 Year
  Sex: Female

DRUGS (8)
  1. ETANERCEPT [Suspect]
     Indication: RHEUMATOID ARTHRITIS
     Dosage: 50 MG EVERY 7 DAYS
     Route: 065
     Dates: end: 20140117
  2. VALSARTAN [Concomitant]
     Dosage: UNK
  3. PANTOZOL                           /01263204/ [Concomitant]
     Dosage: UNK
  4. ASS 100 [Concomitant]
     Dosage: UNK
  5. IDEOS [Concomitant]
     Dosage: UNK
  6. AMIODARONE [Concomitant]
     Dosage: UNK
  7. TEVANATE [Concomitant]
     Dosage: UNK
  8. PREDNISOLON                        /00016201/ [Concomitant]
     Dosage: UNK

REACTIONS (1)
  - Gastric cancer [Unknown]
